FAERS Safety Report 7452493-3 (Version None)
Quarter: 2011Q2

REPORT INFORMATION
  Report Type: 
  Country: None (occurrence: None)
  Receive Date: 20110502
  Receipt Date: 20101006
  Transmission Date: 20111010
  Serious: No
  Sender: FDA-Public Use
  Company Number: US-ASTRAZENECA-2010SE47125

PATIENT
  Age: 64 Year
  Sex: Male
  Weight: 111.1 kg

DRUGS (10)
  1. TESTOSTERONE [Concomitant]
  2. VITAMIN B12 SHOTS [Concomitant]
  3. VIT D [Concomitant]
  4. VALIUM [Concomitant]
  5. OXCONTIN [Concomitant]
  6. ALBUTEROL [Concomitant]
  7. MOBIC [Concomitant]
  8. DIOVAN [Concomitant]
  9. NEXIUM [Suspect]
     Dosage: 40 MG
     Route: 048
  10. SYMBICORT [Concomitant]

REACTIONS (4)
  - BLOOD TESTOSTERONE DECREASED [None]
  - EROSIVE OESOPHAGITIS [None]
  - VITAMIN B12 DECREASED [None]
  - VITAMIN D DECREASED [None]
